FAERS Safety Report 4528628-9 (Version None)
Quarter: 2004Q4

REPORT INFORMATION
  Report Type: 
  Country: None (occurrence: None)
  Receive Date: 20041216
  Receipt Date: 20030513
  Transmission Date: 20050328
  Serious: Yes (Hospitalization)
  Sender: FDA-Public Use
  Company Number: PHHO2003TR06059

PATIENT
  Age: 35 Year
  Sex: Male

DRUGS (3)
  1. CELLCEPT [Concomitant]
     Indication: RENAL TRANSPLANT
     Dosage: 2000MG DAILY
     Route: 048
     Dates: start: 20020402
  2. PREDNOL [Concomitant]
     Indication: RENAL TRANSPLANT
     Dosage: 5 MG, QD
     Route: 048
     Dates: start: 20020402
  3. NEORAL [Suspect]
     Indication: RENAL TRANSPLANT
     Dosage: 150MG DAILY
     Route: 048
     Dates: start: 20020402

REACTIONS (1)
  - DIABETES MELLITUS [None]
